FAERS Safety Report 5375941-1 (Version None)
Quarter: 2007Q2

REPORT INFORMATION
  Report Type: 
  Country: None (occurrence: None)
  Receive Date: 20070627
  Receipt Date: 20070627
  Transmission Date: 20071010
  Serious: Yes (Hospitalization)
  Sender: FDA-Public Use
  Company Number: None

PATIENT
  Age: 65 Year
  Sex: Male
  Weight: 118.6 kg

DRUGS (17)
  1. VANCOMYCIN [Suspect]
     Indication: CATHETER RELATED COMPLICATION
     Dosage: IV
     Route: 042
  2. VANCOMYCIN [Suspect]
     Indication: PERITONITIS
     Dosage: IV
     Route: 042
  3. PERAGEL [Concomitant]
  4. HUMALOG [Concomitant]
  5. K+ [Concomitant]
  6. LANTUS [Concomitant]
  7. QUESTRAN [Concomitant]
  8. ATENOLOL [Concomitant]
  9. ZETIA [Concomitant]
  10. FOSRENOL [Concomitant]
  11. GEMFIBROZIL [Concomitant]
  12. PRILOSEC [Concomitant]
  13. MIRALAX [Concomitant]
  14. REGLAN [Concomitant]
  15. AMBIEN [Concomitant]
  16. MIDODRINE [Concomitant]
  17. VICODIN [Concomitant]

REACTIONS (3)
  - CONTUSION [None]
  - PETECHIAE [None]
  - THROMBOCYTOPENIA [None]
